FAERS Safety Report 11311307 (Version 1)
Quarter: 2015Q3

REPORT INFORMATION
  Report Type: Spontaneous
  Country: GB (occurrence: None)
  Receive Date: 20150723
  Receipt Date: 20150723
  Transmission Date: 20151125
  Serious: Yes (Disabling)
  Sender: FDA-Public Use
  Company Number: COLO_20144_2015

PATIENT
  Sex: Female

DRUGS (2)
  1. COLGATE BAKING SODA AND PEROXIDE WHITENING OXYGEN BUBBLES FROSTY MINT [Suspect]
     Active Substance: SODIUM MONOFLUOROPHOSPHATE
     Indication: PRODUCT USED FOR UNKNOWN INDICATION
     Route: 048
  2. COLGATE DEEP CLEAN FLUORIDE [Suspect]
     Active Substance: SODIUM FLUORIDE

REACTIONS (10)
  - Swollen tongue [None]
  - Oral mucosal exfoliation [None]
  - Dysphagia [None]
  - Oral infection [None]
  - Aphthous ulcer [None]
  - Pain [None]
  - Pharyngitis [None]
  - Impaired work ability [None]
  - Eating disorder [None]
  - Dyspnoea [None]
